FAERS Safety Report 4843492-6 (Version None)
Quarter: 2005Q4

REPORT INFORMATION
  Report Type: 
  Country: None (occurrence: None)
  Receive Date: 20051101
  Receipt Date: 20050720
  Transmission Date: 20060501
  Serious: No
  Sender: FDA-Public Use
  Company Number: MK200506-0364-2

PATIENT
  Age: 49 Year
  Sex: Male

DRUGS (1)
  1. NEUTROSPEC [Suspect]
     Indication: DEVICE RELATED INFECTION
     Dosage: 18.6 MCI, ONE TIME, IV
     Route: 042
     Dates: start: 20050607, end: 20050607

REACTIONS (2)
  - FEELING HOT [None]
  - FLUSHING [None]
